FAERS Safety Report 6949981-2 (Version None)
Quarter: 2010Q3

REPORT INFORMATION
  Report Type: 
  Country: None (occurrence: None)
  Receive Date: 20100828
  Receipt Date: 20100122
  Transmission Date: 20110219
  Serious: No
  Sender: FDA-Public Use
  Company Number: US-ABBOTT-10P-163-0622396-00

PATIENT
  Sex: Male
  Weight: 122.58 kg

DRUGS (12)
  1. NIASPAN [Suspect]
     Indication: CARDIAC DISORDER
     Route: 048
     Dates: start: 20090101
  2. MIRAPEX [Concomitant]
     Indication: RESTLESS LEGS SYNDROME
     Route: 048
  3. MIRAPEX [Concomitant]
     Indication: SURGERY
  4. TRAMADOL HCL [Concomitant]
     Indication: BACK PAIN
     Route: 048
  5. ASPIRIN [Concomitant]
     Indication: PRODUCT USED FOR UNKNOWN INDICATION
     Route: 048
  6. TORSEMIDE [Concomitant]
     Indication: DIURETIC THERAPY
     Route: 048
  7. OMEPRAZOLE [Concomitant]
     Indication: GASTROOESOPHAGEAL REFLUX DISEASE
     Route: 048
  8. SPIRONOLACTONE [Concomitant]
     Indication: PRODUCT USED FOR UNKNOWN INDICATION
     Dosage: PT NOT SURE WHY TAKING
     Route: 048
  9. ALLOPURINOL [Concomitant]
     Indication: GOUT
     Route: 048
  10. BYSTOLIC [Concomitant]
     Indication: HYPERTENSION
     Route: 048
  11. CLONIDINE [Concomitant]
     Indication: HYPERTENSION
     Dosage: AS NEEDED
  12. AMLODIPINE/BENZ [Concomitant]
     Indication: HYPERTENSION
     Dosage: 10/20
     Route: 048

REACTIONS (3)
  - FLUSHING [None]
  - PRURITUS [None]
  - RASH [None]
